FAERS Safety Report 4919785-0 (Version None)
Quarter: 2006Q1

REPORT INFORMATION
  Report Type: 
  Country: None (occurrence: None)
  Receive Date: 20060216
  Receipt Date: 20060127
  Transmission Date: 20060701
  Serious: Yes (Hospitalization, Other)
  Sender: FDA-Public Use
  Company Number: FR200601004942

PATIENT
  Age: 70 Year
  Sex: Female

DRUGS (7)
  1. FORTEO [Suspect]
     Indication: OSTEOPOROSIS
     Dosage: 20 ?G, DIALY (1/D), SUBCUTANEOUS
     Route: 058
     Dates: start: 20060114
  2. FORTEO [Concomitant]
  3. CORTISONE ACETATE [Concomitant]
  4. TRIVASTAL( PIRIBEDIL) [Concomitant]
  5. ACETAMINOPHEN W/ PROPOXYPHENE HCL [Concomitant]
  6. MUCOMYST [Concomitant]
  7. BACTRIM [Concomitant]

REACTIONS (3)
  - HYPOTENSION [None]
  - MALAISE [None]
  - PHLEBITIS [None]
